FAERS Safety Report 16291708 (Version 1)
Quarter: 2019Q2

REPORT INFORMATION
  Report Type: Spontaneous
  Country: US (occurrence: US)
  Receive Date: 20190509
  Receipt Date: 20190509
  Transmission Date: 20190711
  Serious: No
  Sender: FDA-Public Use
  Company Number: US-TEVA-2019-US-1046763

PATIENT
  Age: 23 Year
  Sex: Male

DRUGS (3)
  1. VANCOMYCIN [Suspect]
     Active Substance: VANCOMYCIN
     Indication: EVIDENCE BASED TREATMENT
     Route: 033
  2. DEXTROSE. [Concomitant]
     Active Substance: DEXTROSE
     Dosage: EXCHANGE VOLUME OF 10 L 1.5% DEXTROSE OVERNIGHT (5 EXCHANGES, 2 L PER EXCHANGE)
     Route: 065
  3. CEFTAZIDIME. [Concomitant]
     Active Substance: CEFTAZIDIME
     Indication: EVIDENCE BASED TREATMENT
     Route: 033

REACTIONS (3)
  - Bandaemia [Recovering/Resolving]
  - Eosinophilia [Recovering/Resolving]
  - Drug hypersensitivity [Recovering/Resolving]
